FAERS Safety Report 6925310-5 (Version None)
Quarter: 2010Q3

REPORT INFORMATION
  Report Type: 
  Country: None (occurrence: None)
  Receive Date: 20100810
  Receipt Date: 20100726
  Transmission Date: 20110219
  Serious: Yes (Hospitalization, Other)
  Sender: FDA-Public Use
  Company Number: TUK2010A00222

PATIENT
  Age: 25 Year
  Sex: Female

DRUGS (3)
  1. ACTOS [Suspect]
     Indication: DIABETES MELLITUS
  2. INSULIN (INSULIN) [Suspect]
     Indication: DIABETES MELLITUS
     Dosage: SUBCUTANEOUS
     Route: 058
  3. METFORMIN HCL [Suspect]
     Indication: DIABETES MELLITUS

REACTIONS (13)
  - BLOOD BICARBONATE DECREASED [None]
  - BLOOD CREATININE INCREASED [None]
  - BLOOD POTASSIUM INCREASED [None]
  - BLOOD SODIUM DECREASED [None]
  - CACHEXIA [None]
  - DIABETES MELLITUS INADEQUATE CONTROL [None]
  - DIABETIC NEUROPATHY [None]
  - INFARCTION [None]
  - MUSCLE ATROPHY [None]
  - MUSCLE DISORDER [None]
  - NECROSIS [None]
  - PLATELET COUNT DECREASED [None]
  - WHITE BLOOD CELL COUNT DECREASED [None]
